FAERS Safety Report 4488160-8 (Version None)
Quarter: 2004Q4

REPORT INFORMATION
  Report Type: 
  Country: None (occurrence: None)
  Receive Date: 20041028
  Receipt Date: 20041022
  Transmission Date: 20050328
  Serious: Yes (Other)
  Sender: FDA-Public Use
  Company Number: US-JNJFOC-20041007423

PATIENT
  Age: 30 Year
  Sex: Male

DRUGS (4)
  1. RISPERDAL [Suspect]
     Indication: SCHIZOPHRENIA
     Route: 049
  2. COGENTIN [Concomitant]
     Route: 049
  3. BENADRYL [Concomitant]
     Dosage: DOSE TAKEN AT NIGHT
     Route: 049
  4. PAXIL CR [Concomitant]
     Route: 049

REACTIONS (2)
  - BLOOD TRIGLYCERIDES INCREASED [None]
  - HYPERCHOLESTEROLAEMIA [None]
